FAERS Safety Report 4595912-2 (Version None)
Quarter: 2005Q1

REPORT INFORMATION
  Report Type: 
  Country: None (occurrence: None)
  Receive Date: 20050224
  Receipt Date: 20050210
  Transmission Date: 20050727
  Serious: Yes (Death, Hospitalization)
  Sender: FDA-Public Use
  Company Number: 8008909

PATIENT
  Age: 61 Year
  Sex: Male

DRUGS (9)
  1. KEPPRA [Suspect]
     Dosage: 2/D PO
     Route: 048
     Dates: start: 20040221
  2. ALDACTONE [Suspect]
     Dosage: 50 MG 1/D PO
     Route: 048
  3. BRISTOPEN [Suspect]
     Dosage: 2000 MG 3/D PO
     Route: 048
     Dates: start: 20041223, end: 20041230
  4. ORBENIN CAP [Suspect]
     Dosage: 2000 MG 3/D PO
     Route: 048
     Dates: start: 20041117, end: 20041223
  5. LASILIX [Suspect]
     Dosage: 1/D PO
     Route: 048
  6. PRAVASTATIN [Suspect]
     Indication: LIPID METABOLISM DISORDER
     Dates: end: 20041106
  7. DUPHALAC [Concomitant]
  8. NEXIUM [Concomitant]
  9. LEVOFLOXACIN [Concomitant]

REACTIONS (5)
  - ASCITES [None]
  - HEPATIC FAILURE [None]
  - HYPERSPLENISM [None]
  - NERVOUS SYSTEM DISORDER [None]
  - OEDEMA [None]
